FAERS Safety Report 6942209-9 (Version None)
Quarter: 2010Q3

REPORT INFORMATION
  Report Type: 
  Country: None (occurrence: None)
  Receive Date: 20100823
  Receipt Date: 20100805
  Transmission Date: 20110219
  Serious: No
  Sender: FDA-Public Use
  Company Number: ACO_01680_2010

PATIENT
  Age: 54 Year
  Sex: Male

DRUGS (2)
  1. AMPYRA [Suspect]
     Indication: GAIT DISTURBANCE
     Dosage: 10 MG BID
     Dates: start: 20100701
  2. IV STEROID [Suspect]
     Dosage: 3 DAY COURSE INTRAVENOUS (NOT OTHERWISE SPECIFIED)
     Route: 042
     Dates: start: 20100729

REACTIONS (2)
  - CONDITION AGGRAVATED [None]
  - NEURALGIA [None]
